FAERS Safety Report 4962712-0 (Version None)
Quarter: 2006Q2

REPORT INFORMATION
  Report Type: 
  Country: None (occurrence: None)
  Receive Date: 20060404
  Receipt Date: 20051205
  Transmission Date: 20061013
  Serious: Yes (Hospitalization)
  Sender: FDA-Public Use
  Company Number: US-MERCK-0512USA00643

PATIENT
  Age: 50 Year
  Sex: Male
  Weight: 127 kg

DRUGS (7)
  1. VIOXX [Suspect]
     Indication: ARTHRITIS
     Route: 048
     Dates: start: 20010214, end: 20040930
  2. LISINOPRIL [Concomitant]
     Indication: HYPERTENSION
     Route: 065
     Dates: start: 20020101
  3. ZESTORETIC [Concomitant]
     Route: 065
  4. ATENOLOL [Concomitant]
     Route: 065
  5. LEVAQUIN [Concomitant]
     Route: 065
  6. KLOR-CON [Concomitant]
     Route: 065
  7. NASACORT [Concomitant]
     Route: 065

REACTIONS (8)
  - ALCOHOLISM [None]
  - CARDIAC DISORDER [None]
  - DEEP VEIN THROMBOSIS [None]
  - LIVER DISORDER [None]
  - NEPHROLITHIASIS [None]
  - OEDEMA [None]
  - SLEEP APNOEA SYNDROME [None]
  - THROMBOSIS [None]
